FAERS Safety Report 5328783-7 (Version None)
Quarter: 2007Q2

REPORT INFORMATION
  Report Type: 
  Country: None (occurrence: None)
  Receive Date: 20070516
  Receipt Date: 20070516
  Transmission Date: 20071010
  Serious: Yes (Hospitalization)
  Sender: FDA-Public Use
  Company Number: None

PATIENT
  Sex: Male
  Weight: 63.5 kg

DRUGS (7)
  1. FLUOROURACIL [Suspect]
     Dosage: 3.9 MG
  2. BEVACIZUMAB (RHUMAB VEGF) [Suspect]
     Dosage: 310 MG
  3. LEUCOVORIN CALCIUM [Suspect]
     Dosage: 625 MG
  4. ELOXATIN [Suspect]
     Dosage: 138 MG
  5. AVAPRO [Concomitant]
  6. HYTRIN [Concomitant]
  7. NEXIUM [Concomitant]

REACTIONS (2)
  - DIARRHOEA [None]
  - FEBRILE NEUTROPENIA [None]
